FAERS Safety Report 9379458 (Version 1)
Quarter: 2013Q3

REPORT INFORMATION
  Report Type: Spontaneous
  Country: PL (occurrence: PL)
  Receive Date: 20130702
  Receipt Date: 20130702
  Transmission Date: 20140515
  Serious: Yes (Life-Threatening, Other)
  Sender: FDA-Public Use
  Company Number: PL-PFIZER INC-2013195269

PATIENT
  Age: 63 Year
  Sex: Male
  Weight: 81 kg

DRUGS (2)
  1. CISPLATIN [Suspect]
     Dosage: 57.03 MG, PER DAY
     Route: 042
  2. ETOPOSIDE-EBEWE [Suspect]
     Dosage: 190.1 MG, PER DAY
     Route: 042
     Dates: start: 20130612, end: 20130614

REACTIONS (1)
  - Pancytopenia [Recovering/Resolving]
